FAERS Safety Report 5071817-8 (Version None)
Quarter: 2006Q3

REPORT INFORMATION
  Report Type: 
  Country: None (occurrence: None)
  Receive Date: 20060801
  Receipt Date: 20060720
  Transmission Date: 20061208
  Serious: Yes (Hospitalization)
  Sender: FDA-Public Use
  Company Number: HQWYE202420JUL06

PATIENT
  Age: 72 Year
  Sex: Male

DRUGS (9)
  1. CORDARONE [Suspect]
     Indication: ATRIAL FIBRILLATION
     Dosage: 200 MG TABLET, DOSE UNSPECIFIED
     Route: 048
  2. CORDARONE [Suspect]
     Indication: ATRIAL FLUTTER
     Dosage: 200 MG TABLET, DOSE UNSPECIFIED
     Route: 048
  3. ATARAX (HYDROXYZIINE HYDROCHLORIDE) [Suspect]
     Indication: ANXIETY
  4. DIGOXIN [Suspect]
     Indication: ATRIAL FIBRILLATION
     Route: 048
  5. DIGOXIN [Suspect]
     Indication: ATRIAL FLUTTER
     Route: 048
  6. LASIX [Suspect]
     Indication: CARDIAC FAILURE
     Dates: end: 20060101
  7. NOCTRAN 10 (ACEPROMAZINE/ACEPROMETAZINE/CLORAZEPATE DIPOTASSIUM) [Suspect]
     Indication: SLEEP DISORDER
     Dosage: 10 MG TABLET
     Route: 048
  8. PREVISCAN (FLUINDIONE) [Suspect]
     Indication: ATRIAL FIBRILLATION
     Dosage: 20 MG TABLET
     Route: 048
  9. PREVISCAN (FLUINDIONE) [Suspect]
     Indication: ATRIAL FLUTTER
     Dosage: 20 MG TABLET
     Route: 048

REACTIONS (3)
  - DRUG ERUPTION [None]
  - LICHEN PLANUS [None]
  - LICHENOID KERATOSIS [None]
